FAERS Safety Report 4931059-0 (Version None)
Quarter: 2006Q1

REPORT INFORMATION
  Report Type: 
  Country: None (occurrence: None)
  Receive Date: 20060302
  Receipt Date: 20050719
  Transmission Date: 20060701
  Serious: Yes (Hospitalization)
  Sender: FDA-Public Use
  Company Number: US-MERCK-0507USA03137

PATIENT
  Age: 60 Year
  Sex: Female
  Weight: 68 kg

DRUGS (2)
  1. VIOXX [Suspect]
     Indication: ARTHRITIS
     Route: 048
     Dates: start: 20010511, end: 20030308
  2. TYLENOL (CAPLET) [Concomitant]
     Indication: ANALGESIC EFFECT
     Route: 065

REACTIONS (3)
  - MYOCARDIAL INFARCTION [None]
  - PULMONARY OEDEMA [None]
  - VENTRICULAR HYPERTROPHY [None]
